FAERS Safety Report 6103044-7 (Version None)
Quarter: 2009Q1

REPORT INFORMATION
  Report Type: 
  Country: None (occurrence: None)
  Receive Date: 20090305
  Receipt Date: 20090226
  Transmission Date: 20090719
  Serious: Yes (Other)
  Sender: FDA-Public Use
  Company Number: US-JNJFOC-20090300074

PATIENT
  Sex: Female
  Weight: 68.04 kg

DRUGS (16)
  1. FENTANYL TRANSDERMAL SYSTEM [Suspect]
     Indication: ABDOMINAL PAIN
     Route: 062
  2. FENTANYL TRANSDERMAL SYSTEM [Suspect]
     Route: 062
  3. FENTANYL TRANSDERMAL SYSTEM [Suspect]
     Indication: ABDOMINAL PAIN
     Route: 062
  4. FENTANYL TRANSDERMAL SYSTEM [Suspect]
     Indication: ABDOMINAL PAIN
     Route: 062
  5. PROTONIX [Concomitant]
     Indication: GASTROINTESTINAL PAIN
     Route: 048
  6. NITRO-DUR [Concomitant]
     Indication: ANGINA PECTORIS
     Dosage: EVERY MORNING FOR 10 HOURS
     Route: 062
  7. NITROGLYCERIN [Concomitant]
     Indication: ANGINA PECTORIS
     Dosage: AS NEEDED
     Route: 060
  8. LIPITOR [Concomitant]
     Indication: BLOOD CHOLESTEROL INCREASED
     Route: 048
  9. ATENOLOL [Concomitant]
     Indication: CARDIAC DISORDER
     Route: 048
  10. TEMAZEPAM [Concomitant]
     Indication: SLEEP DISORDER
     Dosage: AS NEEDED
     Route: 048
  11. PREDNISONE [Concomitant]
     Indication: CROHN'S DISEASE
     Dosage: 5 MG 6 TABLETS A DAY
     Route: 048
  12. ASPIRIN [Concomitant]
     Indication: CARDIAC DISORDER
     Dosage: 81 MG 2 TABLETS A DAY
     Route: 048
  13. ASACOL [Concomitant]
     Indication: CROHN'S DISEASE
     Dosage: 400 MG 4 TABLETS A DAY
     Route: 048
  14. VITAMIN D [Concomitant]
     Indication: VITAMIN SUPPLEMENTATION
     Route: 048
  15. LIBRAX [Concomitant]
     Indication: IRRITABLE BOWEL SYNDROME
     Dosage: 5 MG/2.5 MG AS NEEDED
     Route: 048
  16. PRISTIQ [Concomitant]
     Indication: DEPRESSION
     Route: 048

REACTIONS (3)
  - ABDOMINAL HERNIA [None]
  - ABDOMINAL PAIN [None]
  - DRUG INEFFECTIVE [None]
